FAERS Safety Report 8456428-6 (Version None)
Quarter: 2012Q2

REPORT INFORMATION
  Report Type: 
  Country: None (occurrence: None)
  Receive Date: 20120621
  Receipt Date: 20120608
  Transmission Date: 20120825
  Serious: No
  Sender: FDA-Public Use
  Company Number: US-ASTRAZENECA-2009SE30144

PATIENT
  Sex: Female
  Weight: 72.6 kg

DRUGS (5)
  1. TOPROL-XL [Concomitant]
     Indication: HEART RATE INCREASED
  2. METOPROLOL SUCCINATE [Suspect]
     Indication: PROPHYLAXIS
  3. FEMARA [Concomitant]
  4. ARIMIDEX [Suspect]
     Indication: BREAST CANCER
     Route: 048
     Dates: start: 20090901
  5. NOLVADEX [Suspect]
     Route: 048

REACTIONS (9)
  - SKIN DISORDER [None]
  - OFF LABEL USE [None]
  - JOINT SWELLING [None]
  - ADVERSE EVENT [None]
  - OEDEMA PERIPHERAL [None]
  - HEART RATE INCREASED [None]
  - ARTHRALGIA [None]
  - INTENTIONAL DRUG MISUSE [None]
  - ALOPECIA [None]
